FAERS Safety Report 7731128-6 (Version None)
Quarter: 2011Q3

REPORT INFORMATION
  Report Type: 
  Country: None (occurrence: None)
  Receive Date: 20110906
  Receipt Date: 20110906
  Transmission Date: 20111222
  Serious: Yes (Hospitalization, Other)
  Sender: FDA-Public Use
  Company Number: None

PATIENT
  Age: 44 Year
  Sex: Female
  Weight: 79.378 kg

DRUGS (1)
  1. VISTARIL [Suspect]
     Indication: ANXIETY
     Dosage: TID
     Route: 048
     Dates: start: 20110711, end: 20110813

REACTIONS (12)
  - HYPERHIDROSIS [None]
  - ABDOMINAL PAIN [None]
  - PRURITUS [None]
  - VISUAL IMPAIRMENT [None]
  - NASAL ULCER [None]
  - CONVULSION [None]
  - HEART RATE INCREASED [None]
  - VISION BLURRED [None]
  - HYPERTENSION [None]
  - RASH [None]
  - OROPHARYNGEAL PAIN [None]
  - PYREXIA [None]
